FAERS Safety Report 9467417 (Version 1)
Quarter: 2013Q3

REPORT INFORMATION
  Report Type: Report from Study
  Country: FR (occurrence: FR)
  Receive Date: 20130821
  Receipt Date: 20130821
  Transmission Date: 20140515
  Serious: Yes (Hospitalization, Other)
  Sender: FDA-Public Use
  Company Number: FR-009507513-1308FRA005620

PATIENT
  Age: 87 Year
  Sex: Male
  Weight: 85 kg

DRUGS (13)
  1. SITAGLIPTIN PHOSPHATE [Suspect]
     Indication: TYPE 2 DIABETES MELLITUS
     Dosage: 100 MG, QD
     Route: 048
     Dates: start: 20101012, end: 2010
  2. METFORMIN [Concomitant]
     Indication: TYPE 2 DIABETES MELLITUS
     Dosage: 1000 MG, TID
     Dates: start: 20101012, end: 2010
  3. METFORMIN [Concomitant]
     Dosage: UNK
     Dates: start: 201006, end: 20101012
  4. METFORMIN [Concomitant]
     Dosage: 850 MG, TID
     Dates: start: 2010, end: 2011
  5. METFORMIN [Concomitant]
     Dosage: 1000 MG, TID
     Dates: start: 2011, end: 2011
  6. METFORMIN [Concomitant]
     Dosage: 850 MG, TID
     Dates: start: 2011, end: 20120214
  7. METFORMIN [Concomitant]
     Dosage: 850 MG, TID
     Dates: start: 2012, end: 2012
  8. GLUCOR [Concomitant]
     Indication: TYPE 2 DIABETES MELLITUS
     Dosage: 50 MG, TID
     Dates: start: 20101012, end: 2011
  9. GLUCOR [Concomitant]
     Dosage: 100 MG, TID
     Route: 048
     Dates: start: 2011, end: 20120214
  10. GLYBURIDE [Concomitant]
     Indication: TYPE 2 DIABETES MELLITUS
     Dosage: 5 MG, TID
     Dates: start: 20110510, end: 2011
  11. LANTUS [Concomitant]
     Indication: TYPE 2 DIABETES MELLITUS
     Dosage: 60 IU, QD
     Dates: start: 20120214, end: 2012
  12. LANTUS [Concomitant]
     Dosage: 40 IU, QD
     Dates: start: 2012, end: 2013
  13. LANTUS [Concomitant]
     Dosage: 44 IU, QD
     Dates: start: 2013

REACTIONS (1)
  - Pulmonary embolism [Unknown]
